FAERS Safety Report 9471303 (Version 1)
Quarter: 2013Q3

REPORT INFORMATION
  Report Type: Spontaneous
  Country: GB (occurrence: GB)
  Receive Date: 20130822
  Receipt Date: 20130822
  Transmission Date: 20140515
  Serious: Yes (Hospitalization)
  Sender: FDA-Public Use
  Company Number: GB-TEVA-426605ISR

PATIENT
  Age: 34 Year
  Sex: Female

DRUGS (8)
  1. LORATADINE [Suspect]
     Indication: SEASONAL ALLERGY
     Route: 048
     Dates: start: 20130722, end: 20130725
  2. LEVETIRACETAM [Concomitant]
     Dosage: 2 GRAM DAILY;
  3. RISPERIDONE [Concomitant]
     Dosage: 1MG IN THE MORNING AND 500MICROGRAMS AT NIGHT.
  4. CARBAMAZEPINE [Concomitant]
     Dosage: 1600 MILLIGRAM DAILY;
  5. TOPIRAMATE [Concomitant]
     Dosage: 300 MILLIGRAM DAILY;
  6. PARACETAMOL [Concomitant]
     Dosage: 1G FOUR TIMES DAILY AS REQUIRED.
  7. CLOBAZAM [Concomitant]
     Dosage: 10MG THREE TIMES DAILY AS REQUIRED.
  8. FUSIDIC ACID [Concomitant]

REACTIONS (2)
  - Convulsion [Recovered/Resolved with Sequelae]
  - Condition aggravated [Unknown]
